FAERS Safety Report 9812115 (Version 1)
Quarter: 2014Q1

REPORT INFORMATION
  Report Type: Report from Study
  Country: TR (occurrence: TR)
  Receive Date: 20140111
  Receipt Date: 20140111
  Transmission Date: 20141002
  Serious: Yes (Death, Hospitalization)
  Sender: FDA-Public Use
  Company Number: TR-US-EMD SERONO, INC.-7261924

PATIENT
  Sex: Male

DRUGS (1)
  1. REBIF [Suspect]
     Indication: RELAPSING-REMITTING MULTIPLE SCLEROSIS
     Route: 058
     Dates: start: 20020901, end: 20130919

REACTIONS (7)
  - Renal failure [Fatal]
  - Blood test abnormal [Fatal]
  - Infection [Fatal]
  - Hepatic enzyme increased [Fatal]
  - Pyrexia [Fatal]
  - Balance disorder [Unknown]
  - Malnutrition [Unknown]
